FAERS Safety Report 8811053 (Version 1)
Quarter: 2012Q4

REPORT INFORMATION
  Report Type: 
  Country: AR (occurrence: AR)
  Receive Date: 20120927
  Receipt Date: 20120927
  Transmission Date: 20130627
  Serious: Yes (Other)
  Sender: FDA-Public Use
  Company Number: PHHY2012AR082925

PATIENT
  Age: 81 Year
  Sex: Female

DRUGS (2)
  1. EXFORGE [Suspect]
     Indication: HYPERTENSION
     Dosage: 1 DF (160 mg vals and 5 mg amlo), daily
  2. EXFORGE [Suspect]
     Dosage: 2 DF, daily

REACTIONS (4)
  - Fall [Recovering/Resolving]
  - Blood pressure increased [Recovering/Resolving]
  - Arthralgia [Recovering/Resolving]
  - Injury [None]
